FAERS Safety Report 5862122-8 (Version None)
Quarter: 2008Q3

REPORT INFORMATION
  Report Type: 
  Country: None (occurrence: None)
  Receive Date: 20080828
  Receipt Date: 20080728
  Transmission Date: 20090109
  Serious: No
  Sender: FDA-Public Use
  Company Number: US-BAYER-200829829NA

PATIENT
  Sex: Male

DRUGS (6)
  1. LEVITRA [Suspect]
     Indication: ERECTILE DYSFUNCTION
     Dosage: TOTAL DAILY DOSE: 20 MG  UNIT DOSE: 20 MG
     Route: 048
     Dates: start: 20080725
  2. SIMVASTATIN [Concomitant]
     Indication: ARTERIAL OCCLUSIVE DISEASE
  3. LISINOPRIL [Concomitant]
     Indication: HYPERTENSION
  4. OLANZAPINE [Concomitant]
     Indication: NERVOUSNESS
  5. LEVOTHYROXINE [Concomitant]
     Indication: THYROID DISORDER
  6. NIASPAN [Concomitant]
     Indication: CEREBROVASCULAR ACCIDENT PROPHYLAXIS

REACTIONS (1)
  - ERECTILE DYSFUNCTION [None]
